FAERS Safety Report 4907016-7 (Version None)
Quarter: 2006Q1

REPORT INFORMATION
  Report Type: 
  Country: None (occurrence: None)
  Receive Date: 20060207
  Receipt Date: 20060202
  Transmission Date: 20060701
  Serious: Yes (Hospitalization)
  Sender: FDA-Public Use
  Company Number: ZONI002261

PATIENT
  Age: 62 Year
  Sex: Female

DRUGS (4)
  1. ZONEGRAN [Suspect]
     Indication: BACK PAIN
     Dosage: SEE IMAGE
     Route: 048
     Dates: start: 20050207, end: 20050508
  2. ZONEGRAN [Suspect]
     Indication: BACK PAIN
     Dosage: SEE IMAGE
     Route: 048
     Dates: start: 20050509, end: 20060117
  3. ZONEGRAN [Suspect]
     Indication: BACK PAIN
     Dosage: SEE IMAGE
     Route: 048
     Dates: start: 20060118, end: 20060125
  4. ZONEGRAN [Suspect]
     Indication: BACK PAIN
     Dosage: SEE IMAGE
     Route: 048
     Dates: start: 20060126

REACTIONS (1)
  - NEPHROLITHIASIS [None]
